FAERS Safety Report 21263395 (Version 1)
Quarter: 2022Q3

REPORT INFORMATION
  Report Type: Spontaneous
  Country: CA (occurrence: CA)
  Receive Date: 20220829
  Receipt Date: 20220829
  Transmission Date: 20221026
  Serious: Yes (Other)
  Sender: FDA-Public Use
  Company Number: CA-JNJFOC-20220855243

PATIENT
  Age: 10 Year
  Sex: Female
  Weight: 25 kg

DRUGS (4)
  1. REMICADE [Suspect]
     Active Substance: INFLIXIMAB
     Indication: Crohn^s disease
     Route: 041
  2. PENTASA [Concomitant]
     Active Substance: MESALAMINE
  3. PREVACID [Concomitant]
     Active Substance: LANSOPRAZOLE
  4. CELEBREX [Concomitant]
     Active Substance: CELECOXIB

REACTIONS (1)
  - Streptococcal infection [Recovered/Resolved]
